FAERS Safety Report 9602361 (Version 2)
Quarter: 2015Q2

REPORT INFORMATION
  Report Type: Spontaneous
  Country: US (occurrence: US)
  Receive Date: 20131007
  Receipt Date: 20150622
  Transmission Date: 20150821
  Serious: Yes (Other)
  Sender: FDA-Public Use
  Company Number: US-GLAXOSMITHKLINE-A1036744A

PATIENT
  Age: 55 Year
  Sex: Female

DRUGS (15)
  1. BENLYSTA [Suspect]
     Active Substance: BELIMUMAB
     Indication: SYSTEMIC LUPUS ERYTHEMATOSUS
     Dosage: 800 MG, U
     Route: 042
     Dates: start: 201202
  2. SOMA [Concomitant]
     Active Substance: CARISOPRODOL
  3. VITAMIN D [Concomitant]
     Active Substance: CHOLECALCIFEROL
  4. LOSARTAN [Concomitant]
     Active Substance: LOSARTAN
  5. METHOTREXATE [Concomitant]
     Active Substance: METHOTREXATE
  6. PLAQUENIL [Concomitant]
     Active Substance: HYDROXYCHLOROQUINE SULFATE
  7. CENTRUM SILVER [Concomitant]
     Active Substance: VITAMINS
  8. PRAVASTATIN [Concomitant]
     Active Substance: PRAVASTATIN\PRAVASTATIN SODIUM
  9. ZALEPLON. [Concomitant]
     Active Substance: ZALEPLON
  10. PREDNISONE. [Concomitant]
     Active Substance: PREDNISONE
  11. CRANBERRY. [Concomitant]
     Active Substance: CRANBERRY
  12. GABAPENTIN. [Concomitant]
     Active Substance: GABAPENTIN
  13. WELLBUTRIN [Concomitant]
     Active Substance: BUPROPION HYDROCHLORIDE
  14. CALCIUM [Concomitant]
     Active Substance: CALCIUM
  15. FOLIC ACID. [Concomitant]
     Active Substance: FOLIC ACID

REACTIONS (6)
  - Cystitis [Recovered/Resolved]
  - Pyrexia [Not Recovered/Not Resolved]
  - Incorrect dose administered [Unknown]
  - Abdominal pain upper [Not Recovered/Not Resolved]
  - Weight decreased [Not Recovered/Not Resolved]
  - Kidney infection [Not Recovered/Not Resolved]

NARRATIVE: CASE EVENT DATE: 20130722
